FAERS Safety Report 19208540 (Version 10)
Quarter: 2022Q2

REPORT INFORMATION
  Report Type: Report from Study
  Country: JP (occurrence: JP)
  Receive Date: 20210504
  Receipt Date: 20220628
  Transmission Date: 20220720
  Serious: Yes (Hospitalization, Other)
  Sender: FDA-Public Use
  Company Number: JP-BRISTOL-MYERS SQUIBB COMPANY-BMS-2021-041291

PATIENT
  Age: 70 Year
  Sex: Male
  Weight: 53.7 kg

DRUGS (10)
  1. NIVOLUMAB [Suspect]
     Active Substance: NIVOLUMAB
     Indication: Non-small cell lung cancer recurrent
     Route: 041
     Dates: start: 20210108, end: 20210315
  2. NIVOLUMAB [Suspect]
     Active Substance: NIVOLUMAB
     Route: 041
  3. IPILIMUMAB [Suspect]
     Active Substance: IPILIMUMAB
     Indication: Non-small cell lung cancer recurrent
     Route: 041
     Dates: start: 20210108, end: 20210222
  4. IPILIMUMAB [Suspect]
     Active Substance: IPILIMUMAB
     Route: 041
  5. CISPLATIN [Suspect]
     Active Substance: CISPLATIN
     Indication: Non-small cell lung cancer recurrent
     Dosage: 120 MG
     Route: 065
     Dates: start: 20210108, end: 20210201
  6. CISPLATIN [Suspect]
     Active Substance: CISPLATIN
  7. ALIMTA [Suspect]
     Active Substance: PEMETREXED DISODIUM
     Indication: Non-small cell lung cancer recurrent
     Dosage: 760 MG
     Route: 065
     Dates: start: 20210108, end: 20210201
  8. ALIMTA [Suspect]
     Active Substance: PEMETREXED DISODIUM
  9. CARBOPLATIN [Suspect]
     Active Substance: CARBOPLATIN
     Indication: Non-small cell lung cancer recurrent
     Route: 065
  10. PACLITAXEL [Suspect]
     Active Substance: PACLITAXEL
     Indication: Non-small cell lung cancer recurrent
     Route: 065

REACTIONS (6)
  - Hepatic function abnormal [Recovering/Resolving]
  - Blood bilirubin increased [Unknown]
  - Rash [Unknown]
  - Liver disorder [Unknown]
  - Alanine aminotransferase increased [Recovering/Resolving]
  - Aspartate aminotransferase increased [Recovering/Resolving]

NARRATIVE: CASE EVENT DATE: 20210405
